FAERS Safety Report 7687030-1 (Version None)
Quarter: 2011Q3

REPORT INFORMATION
  Report Type: 
  Country: None (occurrence: None)
  Receive Date: 20110816
  Receipt Date: 20110810
  Transmission Date: 20111222
  Serious: Yes (Hospitalization)
  Sender: FDA-Public Use
  Company Number: FR-BRISTOL-MYERS SQUIBB COMPANY-15967383

PATIENT
  Age: 80 Year
  Sex: Female

DRUGS (8)
  1. LEVOTHYROXINE SODIUM [Concomitant]
  2. LASIX [Suspect]
     Route: 048
     Dates: end: 20110407
  3. LANTUS [Concomitant]
     Dosage: 1 DF:3-4 IU IN THE MORNING
  4. PREVISCAN [Concomitant]
  5. ASPIRIN [Concomitant]
  6. IRBESARTAN [Suspect]
     Dosage: 1 DF: 1 TABS
     Dates: end: 20110407
  7. PRAVASTATIN SODIUM [Suspect]
     Dates: end: 20110407
  8. NEBIVOLOL HCL [Suspect]
     Dosage: 1 DF:2 SCORED TABS FORMULATION:TEMERIT 5 MG
     Dates: end: 20110407

REACTIONS (2)
  - RENAL FAILURE ACUTE [None]
  - HYPONATRAEMIA [None]
